FAERS Safety Report 13990025 (Version 2)
Quarter: 2017Q3

REPORT INFORMATION
  Report Type: Spontaneous
  Country: RU (occurrence: RU)
  Receive Date: 20170920
  Receipt Date: 20170925
  Transmission Date: 20171128
  Serious: Yes (Death)
  Sender: FDA-Public Use
  Company Number: RU-ROCHE-1991730

PATIENT
  Age: 27 Year
  Sex: Female

DRUGS (1)
  1. CEFTRIAXONE. [Suspect]
     Active Substance: CEFTRIAXONE
     Indication: PRODUCT USED FOR UNKNOWN INDICATION
     Dosage: RECEIVED 6 AMPOULES PER ONE ADMINISTRATION
     Route: 065

REACTIONS (7)
  - Sepsis [Fatal]
  - Cerebral haemorrhage [Fatal]
  - Brain oedema [Fatal]
  - Uterine inflammation [Fatal]
  - Headache [Unknown]
  - Maternal exposure during pregnancy [Unknown]
  - Overdose [Fatal]

NARRATIVE: CASE EVENT DATE: 20170904
